FAERS Safety Report 18919656 (Version 1)
Quarter: 2021Q1

REPORT INFORMATION
  Report Type: Spontaneous
  Country: US (occurrence: US)
  Receive Date: 20210221
  Receipt Date: 20210221
  Transmission Date: 20210420
  Serious: Yes (Death, Hospitalization)
  Sender: FDA-Public Use
  Company Number: US-ROCHE-2771008

PATIENT
  Age: 73 Year
  Sex: Female
  Weight: 79 kg

DRUGS (2)
  1. ACTIVASE [Suspect]
     Active Substance: ALTEPLASE
     Route: 042
     Dates: start: 20210212, end: 20210212
  2. ACTIVASE [Suspect]
     Active Substance: ALTEPLASE
     Indication: CEREBROVASCULAR ACCIDENT
     Dosage: IV BOLUS DOSE GIVEN OVER 1 MINUTE
     Route: 042
     Dates: start: 20210212, end: 20210212

REACTIONS (9)
  - Tachycardia [Unknown]
  - Pain [Unknown]
  - Nausea [Unknown]
  - Blood pressure decreased [Unknown]
  - Lethargy [Unknown]
  - Movement disorder [Unknown]
  - Brain death [Fatal]
  - International normalised ratio increased [Unknown]
  - Cerebral haemorrhage [Unknown]

NARRATIVE: CASE EVENT DATE: 20210212
